FAERS Safety Report 8621314 (Version 2)
Quarter: 2012Q4

REPORT INFORMATION
  Report Type: 
  Country: US (occurrence: US)
  Receive Date: 20120619
  Receipt Date: 20121213
  Transmission Date: 20130627
  Serious: Yes (Hospitalization)
  Sender: FDA-Public Use
  Company Number: PHEH2012US012013

PATIENT
  Sex: Female
  Weight: 70.67 kg

DRUGS (5)
  1. DIOVAN [Suspect]
     Indication: HYPERTENSION
     Dosage: 160 mg, daily
     Route: 048
     Dates: start: 200906
  2. COUMADINE [Concomitant]
     Indication: ATRIAL FIBRILLATION
     Dosage: 7.5 mg, daily
     Route: 048
     Dates: start: 200906, end: 201204
  3. AMIODARONE [Concomitant]
     Indication: ATRIAL FIBRILLATION
     Dosage: 200 mg per day
     Route: 048
     Dates: start: 200903
  4. DETROL [Concomitant]
     Indication: INCONTINENCE
     Dosage: 5 mg, daily
     Route: 048
     Dates: start: 200906
  5. HYDROCHLOROTHIAZIDE [Concomitant]
     Dosage: 25 mg, daily
     Route: 048
     Dates: start: 200502

REACTIONS (2)
  - Cerebrovascular accident [Recovered/Resolved with Sequelae]
  - Hearing impaired [Unknown]
